FAERS Safety Report 11940680 (Version 3)
Quarter: 2016Q1

REPORT INFORMATION
  Report Type: Spontaneous
  Country: DE (occurrence: DE)
  Receive Date: 20160122
  Receipt Date: 20160316
  Transmission Date: 20160526
  Serious: Yes (Life-Threatening, Hospitalization, Other)
  Sender: FDA-Public Use
  Company Number: PHHY2016DE007991

PATIENT
  Age: 42 Year
  Sex: Male
  Weight: 84 kg

DRUGS (1)
  1. GILENYA [Suspect]
     Active Substance: FINGOLIMOD HYDROCHLORIDE
     Indication: RELAPSING-REMITTING MULTIPLE SCLEROSIS
     Dosage: 0.5 MG, QD
     Route: 048
     Dates: start: 201209, end: 20160114

REACTIONS (3)
  - Retro-orbital neoplasm [Recovered/Resolved]
  - Retro-orbital neoplasm [Not Recovered/Not Resolved]
  - B-cell lymphoma [Unknown]

NARRATIVE: CASE EVENT DATE: 201506
